FAERS Safety Report 15403367 (Version 1)
Quarter: 2018Q4

REPORT INFORMATION
  Report Type: Spontaneous
  Country: US (occurrence: US)
  Receive Date: 20180919
  Receipt Date: 20180919
  Transmission Date: 20190204
  Serious: No
  Sender: FDA-Public Use
  Company Number: US-TEVA-2018-US-954777

PATIENT
  Age: 53 Year
  Sex: Male

DRUGS (1)
  1. GUAIFENESIN / DEXTROMETHORPHAN HYDROBROMIDE [Suspect]
     Active Substance: DEXTROMETHORPHAN HYDROBROMIDE\GUAIFENESIN
     Indication: HYPERSENSITIVITY
     Dosage: FORM STRENGTH: 1200 MG/ 60 MG,
     Route: 065
     Dates: start: 20180904, end: 20180905

REACTIONS (1)
  - Drug ineffective [Unknown]
